FAERS Safety Report 20679684 (Version 1)
Quarter: 2022Q2

REPORT INFORMATION
  Report Type: Spontaneous
  Country: US (occurrence: None)
  Receive Date: 20220405
  Receipt Date: 20220405
  Transmission Date: 20220721
  Serious: No
  Sender: FDA-Public Use
  Company Number: None

PATIENT
  Age: 57 Year
  Sex: Female

DRUGS (1)
  1. SOTROVIMAB [Suspect]
     Active Substance: SOTROVIMAB
     Route: 042

REACTIONS (3)
  - Incorrect dose administered [None]
  - Wrong technique in product usage process [None]
  - Device issue [None]

NARRATIVE: CASE EVENT DATE: 20220217
